FAERS Safety Report 7758158-2 (Version None)
Quarter: 2011Q3

REPORT INFORMATION
  Report Type: 
  Country: None (occurrence: None)
  Receive Date: 20110919
  Receipt Date: 20110912
  Transmission Date: 20111222
  Serious: No
  Sender: FDA-Public Use
  Company Number: US-BIOGENIDEC-2011BI034749

PATIENT
  Age: 56 Year
  Sex: Female

DRUGS (4)
  1. AVONEX [Suspect]
     Route: 030
     Dates: start: 20110901
  2. AVONEX [Suspect]
     Indication: MULTIPLE SCLEROSIS
     Route: 030
     Dates: start: 20030501
  3. AVONEX [Suspect]
     Route: 030
     Dates: start: 20110601
  4. AVONEX [Suspect]
     Route: 030
     Dates: start: 20060103

REACTIONS (3)
  - THYROID DISORDER [None]
  - MUSCULOSKELETAL DISORDER [None]
  - BLADDER DISORDER [None]
